FAERS Safety Report 17588772 (Version 1)
Quarter: 2020Q1

REPORT INFORMATION
  Report Type: Spontaneous
  Country: NL (occurrence: NL)
  Receive Date: 20200327
  Receipt Date: 20200327
  Transmission Date: 20200409
  Serious: Yes (Hospitalization)
  Sender: FDA-Public Use
  Company Number: NL-AUROBINDO-AUR-APL-2020-015485

PATIENT
  Age: 66 Year
  Sex: Male

DRUGS (5)
  1. FUROSEMIDE 20 MG TABLETS MYLAN [Suspect]
     Active Substance: FUROSEMIDE
     Indication: CARDIOVASCULAR DISORDER
     Dosage: 20 MILLIGRAM, ONCE A DAY
     Route: 065
     Dates: start: 20120704, end: 20200118
  2. LOSARTAN. [Concomitant]
     Active Substance: LOSARTAN
     Indication: PRODUCT USED FOR UNKNOWN INDICATION
     Dosage: UNK
     Route: 065
  3. ATORVASTATINE [Concomitant]
     Active Substance: ATORVASTATIN
     Indication: PRODUCT USED FOR UNKNOWN INDICATION
     Dosage: UNK
     Route: 065
  4. CARVEDILOL. [Concomitant]
     Active Substance: CARVEDILOL
     Indication: PRODUCT USED FOR UNKNOWN INDICATION
     Dosage: UNK
     Route: 065
  5. OMEPRAZOLE 20 MG GASTRO-RESISTANT CAPSULES,HARD [Suspect]
     Active Substance: OMEPRAZOLE
     Dosage: 20 MILLIGRAM, ONCE A DAY
     Route: 065
     Dates: start: 20110921, end: 20200118

REACTIONS (1)
  - Hypomagnesaemia [Recovered/Resolved]

NARRATIVE: CASE EVENT DATE: 20200117
